FAERS Safety Report 10486615 (Version 2)
Quarter: 2014Q4

REPORT INFORMATION
  Report Type: Spontaneous
  Country: US (occurrence: US)
  Receive Date: 20141001
  Receipt Date: 20141001
  Transmission Date: 20150528
  Serious: No
  Sender: FDA-Public Use
  Company Number: US-KOWA-2014S1000533

PATIENT
  Sex: Female

DRUGS (3)
  1. FLAXEN [Suspect]
     Active Substance: VENLAFAXINE HYDROCHLORIDE
  2. LIVALO [Suspect]
     Active Substance: PITAVASTATIN CALCIUM
     Dates: end: 20140423
  3. LIVALO [Suspect]
     Active Substance: PITAVASTATIN CALCIUM
     Dates: start: 20140428

REACTIONS (7)
  - Muscular weakness [Recovered/Resolved]
  - Peripheral swelling [Recovered/Resolved]
  - Muscle spasms [Recovered/Resolved]
  - Myalgia [Recovered/Resolved]
  - Feeling hot [Recovered/Resolved]
  - Limb discomfort [Recovered/Resolved]
  - Musculoskeletal pain [Recovered/Resolved]

NARRATIVE: CASE EVENT DATE: 20140422
